FAERS Safety Report 5244202-3 (Version None)
Quarter: 2007Q1

REPORT INFORMATION
  Report Type: 
  Country: None (occurrence: None)
  Receive Date: 20070222
  Receipt Date: 20070214
  Transmission Date: 20070707
  Serious: Yes (Other)
  Sender: FDA-Public Use
  Company Number: GB-GLAXOSMITHKLINE-B0459056A

PATIENT
  Age: 46 Year
  Sex: Female

DRUGS (6)
  1. PRIADEL [Suspect]
     Indication: BIPOLAR DISORDER
     Dosage: 800MG PER DAY
     Dates: start: 19850101
  2. ARIPIPRAZOLE [Concomitant]
     Dosage: 30MG PER DAY
  3. DULOXETINE [Concomitant]
     Dosage: 120MG PER DAY
  4. GABAPENTIN [Concomitant]
     Dosage: 900MG PER DAY
  5. TRIIODOTHYRONINE [Concomitant]
  6. VITAMIN D3 [Concomitant]

REACTIONS (5)
  - BRADYCARDIA [None]
  - CARDIAC MURMUR [None]
  - CIRCULATORY COLLAPSE [None]
  - SINUS ARRHYTHMIA [None]
  - SYNCOPE [None]
